FAERS Safety Report 12739418 (Version 3)
Quarter: 2018Q1

REPORT INFORMATION
  Report Type: Spontaneous
  Country: US (occurrence: US)
  Receive Date: 20160913
  Receipt Date: 20180320
  Transmission Date: 20180508
  Serious: Yes (Other)
  Sender: FDA-Public Use
  Company Number: US-JNJFOC-20160906753

PATIENT

DRUGS (1)
  1. EVICEL [Suspect]
     Active Substance: FIBRINOGEN HUMAN\THROMBIN HUMAN
     Indication: TISSUE SEALING
     Route: 061

REACTIONS (6)
  - Oxygen saturation abnormal [Recovered/Resolved]
  - Seizure [Unknown]
  - Mouth haemorrhage [Unknown]
  - Cough [Recovered/Resolved]
  - Off label use [Unknown]
  - Salivary hypersecretion [Recovered/Resolved]
